FAERS Safety Report 5244337-5 (Version None)
Quarter: 2007Q1

REPORT INFORMATION
  Report Type: 
  Country: None (occurrence: None)
  Receive Date: 20070222
  Receipt Date: 20070215
  Transmission Date: 20070707
  Serious: Yes (Hospitalization)
  Sender: FDA-Public Use
  Company Number: 2007AP00608

PATIENT
  Age: 874 Month
  Sex: Male
  Weight: 68 kg

DRUGS (5)
  1. CASODEX [Suspect]
     Indication: PROSTATE CANCER
     Route: 048
     Dates: start: 20050411, end: 20070110
  2. ZOLADEX [Suspect]
     Indication: PROSTATE CANCER
     Route: 058
     Dates: start: 19990601, end: 20011001
  3. ZOLADEX [Suspect]
     Indication: PROSTATE CANCER
     Route: 058
     Dates: start: 20040728, end: 20060830
  4. LEUPROLIDE ACETATE [Suspect]
     Indication: PROSTATE CANCER
     Route: 058
     Dates: start: 20061122, end: 20061122
  5. CERNILTON [Concomitant]
     Indication: DYSURIA
     Route: 048
     Dates: start: 20051219, end: 20061122

REACTIONS (2)
  - HEPATIC FUNCTION ABNORMAL [None]
  - PELIOSIS HEPATIS [None]
